FAERS Safety Report 6193071-6 (Version None)
Quarter: 2009Q2

REPORT INFORMATION
  Report Type: 
  Country: None (occurrence: None)
  Receive Date: 20090514
  Receipt Date: 20090430
  Transmission Date: 20091009
  Serious: Yes (Disabling, Other)
  Sender: FDA-Public Use
  Company Number: 1-18099743

PATIENT
  Sex: Female

DRUGS (2)
  1. HYDROCORTISONE 1%-P CREAM [Suspect]
     Indication: ERYTHEMA
     Dosage: APPLIED ONCE, TOPICAL
     Route: 061
     Dates: start: 20090411, end: 20090411
  2. HYDROCORTISONE 1%-P CREAM [Suspect]
     Indication: RASH
     Dosage: APPLIED ONCE, TOPICAL
     Route: 061
     Dates: start: 20090411, end: 20090411

REACTIONS (10)
  - ALOPECIA [None]
  - BURNING SENSATION [None]
  - DEFORMITY [None]
  - EYE MOVEMENT DISORDER [None]
  - HYPERSENSITIVITY [None]
  - PAIN [None]
  - PRURITUS [None]
  - SKIN DISORDER [None]
  - SWELLING FACE [None]
  - THROAT TIGHTNESS [None]
